FAERS Safety Report 5240354-X (Version None)
Quarter: 2007Q1

REPORT INFORMATION
  Report Type: 
  Country: None (occurrence: None)
  Receive Date: 20070219
  Receipt Date: 20070206
  Transmission Date: 20070707
  Serious: Yes (Other)
  Sender: FDA-Public Use
  Company Number: PHBS2006JP19512

PATIENT
  Age: 36 Year
  Sex: Male

DRUGS (4)
  1. DIOVAN [Suspect]
     Indication: HYPERTENSION
     Dosage: 40 MG/DAY
     Route: 048
     Dates: start: 20050804, end: 20060110
  2. DIOVAN [Suspect]
     Dosage: 80 MG/DAY
     Route: 048
     Dates: start: 20060110, end: 20060810
  3. DIOVAN [Suspect]
     Dosage: 160 MG/DAY
     Route: 048
     Dates: start: 20060810, end: 20061212
  4. ADALAT [Concomitant]
     Dosage: 10 MG, UNK
     Route: 048
     Dates: start: 20060810

REACTIONS (1)
  - BLOOD CREATINE PHOSPHOKINASE INCREASED [None]
